FAERS Safety Report 20658542 (Version 1)
Quarter: 2022Q1

REPORT INFORMATION
  Report Type: Spontaneous
  Country: US (occurrence: US)
  Receive Date: 20220331
  Receipt Date: 20220331
  Transmission Date: 20220423
  Serious: No
  Sender: FDA-Public Use
  Company Number: US-BEH-2022143491

PATIENT
  Sex: Female

DRUGS (17)
  1. HIZENTRA [Suspect]
     Active Substance: HUMAN IMMUNOGLOBULIN G
     Indication: Immunodeficiency common variable
     Dosage: 7 GRAM, QW
     Route: 058
     Dates: start: 20180407
  2. FUROSEMIDE [Concomitant]
     Active Substance: FUROSEMIDE
  3. CEFDINIR [Concomitant]
     Active Substance: CEFDINIR
  4. METHYLPREDNISOLONE [Concomitant]
     Active Substance: METHYLPREDNISOLONE
  5. LORATADINE [Concomitant]
     Active Substance: LORATADINE
  6. CIPROFLOXACIN [Concomitant]
     Active Substance: CIPROFLOXACIN
  7. VITAMIN B12 [Concomitant]
     Active Substance: CYANOCOBALAMIN
  8. VITAMIN D NOS [Concomitant]
     Active Substance: VITAMIN D NOS
  9. DILTIAZEM [Concomitant]
     Active Substance: DILTIAZEM
  10. SIMVASTATIN [Concomitant]
     Active Substance: SIMVASTATIN
  11. NAPROSYN [Concomitant]
     Active Substance: NAPROXEN
  12. ALBUTEROL SULFATE [Concomitant]
     Active Substance: ALBUTEROL SULFATE
  13. IPRATROPIUM [Concomitant]
     Active Substance: IPRATROPIUM
  14. PREDNISONE [Concomitant]
     Active Substance: PREDNISONE
  15. VENTOLIN HFA [Concomitant]
     Active Substance: ALBUTEROL SULFATE
  16. VITAMIN B1 [Concomitant]
     Active Substance: THIAMINE HYDROCHLORIDE
  17. VITAMIN C [Concomitant]
     Active Substance: ASCORBIC ACID

REACTIONS (1)
  - Infusion site pain [Not Recovered/Not Resolved]
